FAERS Safety Report 9746996 (Version 2)
Quarter: 2014Q1

REPORT INFORMATION
  Report Type: Spontaneous
  Country: US (occurrence: US)
  Receive Date: 20131211
  Receipt Date: 20140326
  Transmission Date: 20141002
  Serious: No
  Sender: FDA-Public Use
  Company Number: US-GILEAD-2013-0089666

PATIENT
  Age: 63 Year
  Sex: Female
  Weight: 79 kg

DRUGS (13)
  1. LETAIRIS [Suspect]
     Indication: PULMONARY HYPERTENSION
     Route: 048
  2. LETAIRIS [Suspect]
     Indication: CHRONIC OBSTRUCTIVE PULMONARY DISEASE
  3. LETAIRIS [Suspect]
     Indication: HEREDITARY HAEMORRHAGIC TELANGIECTASIA
  4. PREDNISONE [Concomitant]
  5. SPIRIVA [Concomitant]
     Indication: CHRONIC OBSTRUCTIVE PULMONARY DISEASE
  6. ALBUTEROL                          /00139501/ [Concomitant]
     Indication: CHRONIC OBSTRUCTIVE PULMONARY DISEASE
  7. SYMBICORT [Concomitant]
     Indication: CHRONIC OBSTRUCTIVE PULMONARY DISEASE
  8. ASPIRIN [Concomitant]
  9. FAMOTIDINE [Concomitant]
  10. TYLENOL ARTHRITIS [Concomitant]
  11. LISINOPRIL [Concomitant]
     Indication: HYPERTENSION
  12. DIGOXIN [Concomitant]
  13. LASIX                              /00032601/ [Concomitant]
     Indication: DIURETIC THERAPY

REACTIONS (2)
  - Face oedema [Recovered/Resolved]
  - Erythema [Unknown]
